FAERS Safety Report 13097920 (Version 1)
Quarter: 2017Q1

REPORT INFORMATION
  Report Type: Report from Study
  Country: KR (occurrence: KR)
  Receive Date: 20170109
  Receipt Date: 20170109
  Transmission Date: 20170428
  Serious: Yes (Death, Hospitalization, Other)
  Sender: FDA-Public Use
  Company Number: KR-BRISTOL-MYERS SQUIBB COMPANY-BMS-2016-108670

PATIENT
  Age: 89 Year
  Sex: Female

DRUGS (33)
  1. CEFTRIAXONE. [Concomitant]
     Active Substance: CEFTRIAXONE
     Indication: PRODUCT USED FOR UNKNOWN INDICATION
     Dosage: UNK
     Route: 065
  2. CRESTOR [Concomitant]
     Active Substance: ROSUVASTATIN CALCIUM
     Indication: PRODUCT USED FOR UNKNOWN INDICATION
     Route: 065
  3. LASIX [Concomitant]
     Active Substance: FUROSEMIDE
     Indication: PRODUCT USED FOR UNKNOWN INDICATION
     Dosage: UNK
     Route: 065
  4. ALBUMIN [Concomitant]
     Active Substance: ALBUMIN HUMAN
     Indication: PRODUCT USED FOR UNKNOWN INDICATION
     Dosage: UNK
     Route: 065
  5. EPINEPHRINE. [Concomitant]
     Active Substance: EPINEPHRINE
     Indication: PRODUCT USED FOR UNKNOWN INDICATION
     Dosage: UNK
     Route: 065
  6. DEPAS [Concomitant]
     Active Substance: ETIZOLAM
     Indication: PRODUCT USED FOR UNKNOWN INDICATION
     Dosage: 0.25 MG, UNK
     Route: 065
  7. ZOLMIN [Concomitant]
     Indication: PRODUCT USED FOR UNKNOWN INDICATION
     Dosage: 0.125 MG, UNK
     Route: 065
  8. MULTAQ [Concomitant]
     Active Substance: DRONEDARONE
     Indication: PRODUCT USED FOR UNKNOWN INDICATION
     Route: 065
  9. MIDRON [Concomitant]
     Indication: PRODUCT USED FOR UNKNOWN INDICATION
     Route: 065
  10. PARIET [Concomitant]
     Active Substance: RABEPRAZOLE SODIUM
     Indication: PRODUCT USED FOR UNKNOWN INDICATION
     Dosage: 10 MG, UNK
     Route: 065
  11. MEGEROL [Concomitant]
     Indication: PRODUCT USED FOR UNKNOWN INDICATION
     Dosage: 40 MG/ML, UNK
     Route: 065
  12. TRIDOL [Concomitant]
     Active Substance: TRAMADOL HYDROCHLORIDE
     Indication: PRODUCT USED FOR UNKNOWN INDICATION
     Dosage: 50 MG, UNK
     Route: 065
  13. MAGMIL [Concomitant]
     Active Substance: MAGNESIUM HYDROXIDE
     Indication: PRODUCT USED FOR UNKNOWN INDICATION
     Route: 065
  14. GASOCOL [Concomitant]
     Indication: PRODUCT USED FOR UNKNOWN INDICATION
     Route: 065
  15. TAMIPOOL [Concomitant]
     Active Substance: VITAMINS
     Indication: PRODUCT USED FOR UNKNOWN INDICATION
     Dosage: UNK
     Route: 065
  16. KALIMATE [Concomitant]
     Active Substance: CALCIUM POLYSTYRENE SULFONATE
     Indication: PRODUCT USED FOR UNKNOWN INDICATION
     Dosage: UNK
     Route: 065
  17. SEVIKAR [Concomitant]
     Active Substance: AMLODIPINE BESYLATE\OLMESARTAN MEDOXOMIL
     Indication: PRODUCT USED FOR UNKNOWN INDICATION
     Dosage: 520 MG, UNK
     Route: 065
  18. PERDIPINE [Concomitant]
     Active Substance: NICARDIPINE HYDROCHLORIDE
     Indication: PRODUCT USED FOR UNKNOWN INDICATION
     Dosage: 10 ML, UNK
     Route: 065
  19. ZANAPAM [Concomitant]
     Indication: PRODUCT USED FOR UNKNOWN INDICATION
     Dosage: 0.25 MG, UNK
     Route: 065
  20. ALGIRON [Concomitant]
     Indication: PRODUCT USED FOR UNKNOWN INDICATION
     Dosage: 5 MG/ML, UNK
     Route: 065
  21. APIXABAN [Suspect]
     Active Substance: APIXABAN
     Indication: CEREBROVASCULAR ACCIDENT PROPHYLAXIS
     Dosage: 2.5 MG, BID
     Route: 048
     Dates: start: 20140729, end: 20160124
  22. TAMBOCOR [Concomitant]
     Active Substance: FLECAINIDE ACETATE
     Indication: PRODUCT USED FOR UNKNOWN INDICATION
     Route: 065
  23. PONSTEL [Concomitant]
     Active Substance: MEFENAMIC ACID
     Indication: PRODUCT USED FOR UNKNOWN INDICATION
     Route: 065
  24. MIDAZOLAM [Concomitant]
     Active Substance: MIDAZOLAM HYDROCHLORIDE
     Indication: PRODUCT USED FOR UNKNOWN INDICATION
     Dosage: 5 MG/ML, UNK
     Route: 065
  25. SODIUM BICARBONATE. [Concomitant]
     Active Substance: SODIUM BICARBONATE
     Indication: PRODUCT USED FOR UNKNOWN INDICATION
     Dosage: UNK
     Route: 065
  26. BONALING-A [Concomitant]
     Active Substance: DIMENHYDRINATE
     Indication: PRODUCT USED FOR UNKNOWN INDICATION
     Dosage: 50 MG, UNK
     Route: 065
  27. ATACAND [Concomitant]
     Active Substance: CANDESARTAN CILEXETIL
     Indication: PRODUCT USED FOR UNKNOWN INDICATION
     Dosage: 16 MG, UNK
     Route: 065
  28. COLYTE                             /00751601/ [Concomitant]
     Indication: PRODUCT USED FOR UNKNOWN INDICATION
     Route: 065
  29. PHENIRAMINE [Concomitant]
     Active Substance: PHENIRAMINE
     Indication: PRODUCT USED FOR UNKNOWN INDICATION
     Dosage: UNK
     Route: 065
  30. ORFIL [Concomitant]
     Active Substance: VALPROATE SODIUM
     Indication: PRODUCT USED FOR UNKNOWN INDICATION
     Dosage: UNK
     Route: 065
  31. MEGESTROL [Concomitant]
     Active Substance: MEGESTROL
     Indication: PRODUCT USED FOR UNKNOWN INDICATION
     Dosage: 40 MG, UNK
     Route: 065
  32. BETASIN [Concomitant]
     Indication: PRODUCT USED FOR UNKNOWN INDICATION
     Route: 065
  33. BOLGRE [Concomitant]
     Indication: PRODUCT USED FOR UNKNOWN INDICATION
     Route: 065

REACTIONS (5)
  - Fall [Unknown]
  - Seizure [Unknown]
  - Acute kidney injury [Fatal]
  - Cardiac arrest [Fatal]
  - Femur fracture [Unknown]

NARRATIVE: CASE EVENT DATE: 20151224
